FAERS Safety Report 24453598 (Version 2)
Quarter: 2024Q4

REPORT INFORMATION
  Report Type: Report from Study
  Country: US (occurrence: US)
  Receive Date: 20241017
  Receipt Date: 20241018
  Transmission Date: 20250115
  Serious: No
  Sender: ROCHE
  Company Number: US-ROCHE-3192027

PATIENT
  Age: 49 Year
  Sex: Female

DRUGS (19)
  1. RITUXAN [Suspect]
     Active Substance: RITUXIMAB
     Indication: Systemic scleroderma
     Dosage: 1000 MG TWO WEEKS APART THEN ON EVERY 6 MONTHS?DATE OF SERVICES REPORTED ON 12/MAY/2023, 26/MAY/2023
     Route: 041
     Dates: start: 20230322
  2. RITUXAN [Suspect]
     Active Substance: RITUXIMAB
     Indication: Overlap syndrome
  3. RITUXAN [Suspect]
     Active Substance: RITUXIMAB
     Indication: Connective tissue disorder
  4. ALBUTEROL SULFATE [Concomitant]
     Active Substance: ALBUTEROL SULFATE
     Dosage: INHALE 180 MCG INTO LUNGS FOR EVERY 4 HOURS AS NEEDED.
  5. ECOTRIN [Concomitant]
     Active Substance: ASPIRIN
     Dosage: 3 REFILLS
     Route: 048
     Dates: start: 20211021
  6. LIPITOR [Concomitant]
     Active Substance: ATORVASTATIN CALCIUM
     Dosage: 3 REFILLS
     Route: 048
     Dates: start: 20220817
  7. FLEXERIL [Concomitant]
     Active Substance: CYCLOBENZAPRINE HYDROCHLORIDE
     Dosage: TAKE 10 MG BY MOUTH NIGHTLY
     Route: 048
     Dates: start: 20211021
  8. DOCUSATE SODIUM [Concomitant]
     Active Substance: DOCUSATE SODIUM
     Route: 048
     Dates: start: 20180904
  9. LOPRESSOR [Concomitant]
     Active Substance: METOPROLOL TARTRATE
     Dosage: 3 REFILLS
     Dates: start: 20211026, end: 20211026
  10. PROCARDIA XL [Concomitant]
     Active Substance: NIFEDIPINE
     Route: 048
     Dates: start: 20220415
  11. PROCARDIA XL [Concomitant]
     Active Substance: NIFEDIPINE
     Route: 048
     Dates: start: 20220426
  12. PRILOSEC [Concomitant]
     Active Substance: OMEPRAZOLE MAGNESIUM
     Dosage: 2 TIMES DAILY BEFORE MEALS, 5 REFILLS
     Route: 048
     Dates: start: 20220518
  13. BENICAR HCT [Concomitant]
     Active Substance: HYDROCHLOROTHIAZIDE\OLMESARTAN MEDOXOMIL
     Dosage: 20-12.5 MG PER TABLET
     Route: 048
     Dates: start: 20211003
  14. PHAZYME [Concomitant]
     Active Substance: DIMETHICONE 410
     Route: 048
  15. SUPREP BOWEL PREP [Concomitant]
     Active Substance: MAGNESIUM SULFATE\POTASSIUM SULFATE\SODIUM SULFATE
     Dosage: 17.5-3.13-1.6 GRAM
     Dates: start: 20220518, end: 20220706
  16. CARAFATE [Concomitant]
     Active Substance: SUCRALFATE
     Dosage: 1 REFILL
     Route: 048
     Dates: start: 20211021
  17. UBROGEPANT [Concomitant]
     Active Substance: UBROGEPANT
     Route: 048
     Dates: start: 20210918
  18. ADALAT CC [Concomitant]
     Active Substance: NIFEDIPINE
     Dosage: MOUTH
     Route: 048
     Dates: start: 20220415
  19. BENICAR HCT [Concomitant]
     Active Substance: HYDROCHLOROTHIAZIDE\OLMESARTAN MEDOXOMIL
     Dosage: 12.5- 20 MG TABLET
     Route: 048
     Dates: start: 20210310

REACTIONS (2)
  - Off label use [Unknown]
  - No adverse event [Unknown]
